FAERS Safety Report 8099288-8 (Version None)
Quarter: 2012Q1

REPORT INFORMATION
  Report Type: 
  Country: None (occurrence: None)
  Receive Date: 20120129
  Receipt Date: 20111017
  Transmission Date: 20120608
  Serious: No
  Sender: FDA-Public Use
  Company Number: US-ABBOTT-11P-163-0866839-00

PATIENT
  Sex: Female
  Weight: 82.174 kg

DRUGS (2)
  1. VYTORIN [Concomitant]
     Indication: HYPERLIPIDAEMIA
  2. HUMIRA [Suspect]
     Indication: RHEUMATOID ARTHRITIS
     Route: 058
     Dates: start: 20090401, end: 20100301

REACTIONS (1)
  - LIVER FUNCTION TEST ABNORMAL [None]
